FAERS Safety Report 6915471-6 (Version None)
Quarter: 2010Q3

REPORT INFORMATION
  Report Type: 
  Country: None (occurrence: None)
  Receive Date: 20100809
  Receipt Date: 20100623
  Transmission Date: 20110219
  Serious: No
  Sender: FDA-Public Use
  Company Number: US-ABBOTT-10P-163-0653945-00

PATIENT
  Sex: Male

DRUGS (6)
  1. DEPAKOTE ER [Suspect]
     Indication: BIPOLAR DISORDER
     Dates: start: 20030101
  2. DIVALPROEX SODIUM [Suspect]
     Indication: PRODUCT USED FOR UNKNOWN INDICATION
     Dates: start: 20100427, end: 20100601
  3. LAMICTAL [Concomitant]
     Indication: PRODUCT USED FOR UNKNOWN INDICATION
  4. KLONOPIN [Concomitant]
     Indication: PRODUCT USED FOR UNKNOWN INDICATION
  5. PROPRANOLOL [Concomitant]
     Indication: PRODUCT USED FOR UNKNOWN INDICATION
  6. REQUIP [Concomitant]
     Indication: PRODUCT USED FOR UNKNOWN INDICATION

REACTIONS (5)
  - ALCOHOLISM [None]
  - HEADACHE [None]
  - IMPULSIVE BEHAVIOUR [None]
  - MOOD SWINGS [None]
  - TREMOR [None]
